FAERS Safety Report 5317032-1 (Version None)
Quarter: 2007Q2

REPORT INFORMATION
  Report Type: 
  Country: None (occurrence: None)
  Receive Date: 20070504
  Receipt Date: 20070425
  Transmission Date: 20071010
  Serious: Yes (Hospitalization, Other)
  Sender: FDA-Public Use
  Company Number: US-ROCHE-494839

PATIENT
  Age: 69 Year
  Sex: Female

DRUGS (9)
  1. PEGASYS [Suspect]
     Route: 065
  2. RIBAVIRIN [Suspect]
     Route: 065
  3. DIOVAN [Concomitant]
  4. SYNTHROID [Concomitant]
  5. UNSPECIFIED DRUG [Concomitant]
     Dosage: FOR WHITE BLOOD CELLS
  6. IRON SUPPLEMENT [Concomitant]
     Dosage: IRON SUPPLEMENTS INCLUDED: FERREX 150, NUIRON AND NIFEREX
  7. ATENOLOL [Concomitant]
  8. DIURETIC [Concomitant]
  9. MILK THISTLE [Concomitant]

REACTIONS (8)
  - BLOOD ELECTROLYTES ABNORMAL [None]
  - CARDIAC DISORDER [None]
  - MALAISE [None]
  - MOUTH HAEMORRHAGE [None]
  - PLATELET COUNT DECREASED [None]
  - TOOTH EXTRACTION [None]
  - TOOTHACHE [None]
  - WEIGHT DECREASED [None]
